FAERS Safety Report 24965386 (Version 1)
Quarter: 2025Q1

REPORT INFORMATION
  Report Type: Spontaneous
  Country: DE (occurrence: DE)
  Receive Date: 20250213
  Receipt Date: 20250213
  Transmission Date: 20250408
  Serious: No
  Sender: ASTELLAS
  Company Number: DE-ASTELLAS-2025-AER-008461

PATIENT
  Sex: Female

DRUGS (1)
  1. VEOZAH [Suspect]
     Active Substance: FEZOLINETANT
     Indication: Product used for unknown indication
     Route: 065
     Dates: start: 202410, end: 202410

REACTIONS (4)
  - Fatigue [Unknown]
  - Gastrointestinal disorder [Unknown]
  - Headache [Unknown]
  - Blood bilirubin increased [Unknown]

NARRATIVE: CASE EVENT DATE: 20241001
